FAERS Safety Report 5399266-3 (Version None)
Quarter: 2007Q3

REPORT INFORMATION
  Report Type: 
  Country: None (occurrence: None)
  Receive Date: 20070727
  Receipt Date: 20070724
  Transmission Date: 20080115
  Serious: Yes (Hospitalization)
  Sender: FDA-Public Use
  Company Number: B0476553A

PATIENT
  Age: 60 Year
  Sex: Male

DRUGS (2)
  1. AUGMENTIN '125' [Suspect]
     Dosage: 1.2G TWICE PER DAY
     Route: 042
     Dates: start: 20070609, end: 20070609
  2. ANTIBIOTIC UNSPECIFIED [Concomitant]
     Route: 065

REACTIONS (2)
  - PHARMACEUTICAL PRODUCT COMPLAINT [None]
  - RASH GENERALISED [None]
